FAERS Safety Report 18722257 (Version 4)
Quarter: 2021Q1

REPORT INFORMATION
  Report Type: Spontaneous
  Country: DE (occurrence: DE)
  Receive Date: 20210111
  Receipt Date: 20210220
  Transmission Date: 20210419
  Serious: Yes (Life-Threatening, Hospitalization, Other)
  Sender: FDA-Public Use
  Company Number: DE-AUROBINDO-AUR-APL-2021-000073

PATIENT
  Age: 53 Year
  Sex: Female

DRUGS (17)
  1. NALOXONE;OXYCODONE [Suspect]
     Active Substance: NALOXONE HYDROCHLORIDE\OXYCODONE HYDROCHLORIDE
     Indication: PAIN
     Dosage: 20 MILLIGRAM, TWO TIMES A DAY
     Route: 048
  2. PRILOCAINE HYDROCHLORIDE. [Suspect]
     Active Substance: PRILOCAINE HYDROCHLORIDE
     Indication: INFILTRATION ANAESTHESIA
     Dosage: UNK (ON JANUARY 15 AND 17)
     Route: 008
  3. TORASEMIDE [Suspect]
     Active Substance: TORSEMIDE
     Indication: PRODUCT USED FOR UNKNOWN INDICATION
     Dosage: 5 MILLIGRAM, ONCE A DAY
     Route: 065
  4. TRIAMCINOLONE [Suspect]
     Active Substance: TRIAMCINOLONE
     Dosage: 40 MILLIGRAM, JANUARY 21
     Route: 037
  5. DEXMETHASONE [Suspect]
     Active Substance: DEXAMETHASONE
     Indication: INFILTRATION ANAESTHESIA
     Dosage: UNK
     Route: 050
  6. LEVOTHYROXINE SODIUM. [Suspect]
     Active Substance: LEVOTHYROXINE SODIUM
     Indication: PRODUCT USED FOR UNKNOWN INDICATION
     Dosage: 125 MICROGRAM, ONCE A DAY
     Route: 065
  7. CANDESARTAN TABLETS [Suspect]
     Active Substance: CANDESARTAN
     Indication: PRODUCT USED FOR UNKNOWN INDICATION
     Dosage: 16 MILLIGRAM
     Route: 065
  8. AMLODIPINE [Suspect]
     Active Substance: AMLODIPINE BESYLATE
     Indication: PRODUCT USED FOR UNKNOWN INDICATION
     Dosage: 5 MILLIGRAM, ONCE A DAY
     Route: 065
  9. BUPIVACAINE SOLUTION FOR INJECTION [Suspect]
     Active Substance: BUPIVACAINE
     Indication: INFILTRATION ANAESTHESIA
     Dosage: ON JANUARY 14 AND 18
     Route: 065
  10. BISOPROLOL 5 MG [Suspect]
     Active Substance: BISOPROLOL
     Indication: PRODUCT USED FOR UNKNOWN INDICATION
     Dosage: 5 MILLIGRAM, ONCE A DAY
     Route: 065
  11. CELECOXIB 100MG [Suspect]
     Active Substance: CELECOXIB
     Indication: PAIN
     Dosage: 100 MILLIGRAM, TWO TIMES A DAY
     Route: 048
  12. METAMIZOLE [Suspect]
     Active Substance: METAMIZOLE
     Indication: PAIN
     Dosage: 1 GRAM, FOUR TIMES/DAY
     Route: 042
  13. TRIAMCINOLONE [Suspect]
     Active Substance: TRIAMCINOLONE
     Indication: INFILTRATION ANAESTHESIA
     Dosage: UNK (JANUARY 15 AND 17)
     Route: 065
  14. VALPROATE [Suspect]
     Active Substance: VALPROIC ACID
     Indication: PRODUCT USED FOR UNKNOWN INDICATION
     Dosage: 300 MILLIGRAM, TWO TIMES A DAY
     Route: 065
  15. BUPIVACAINE SOLUTION FOR INJECTION [Suspect]
     Active Substance: BUPIVACAINE
     Dosage: ON JANUARY 15 AND 17
     Route: 008
  16. BUPIVACAINE SOLUTION FOR INJECTION [Suspect]
     Active Substance: BUPIVACAINE
     Dosage: ON JANUARY 21
     Route: 037
  17. TRIAMCINOLONE [Suspect]
     Active Substance: TRIAMCINOLONE
     Dosage: 40 MILLIGRAM, JANUARY 15 AND 17
     Route: 065

REACTIONS (1)
  - Necrotising fasciitis [Recovering/Resolving]

NARRATIVE: CASE EVENT DATE: 20191004
